FAERS Safety Report 14761584 (Version 1)
Quarter: 2018Q2

REPORT INFORMATION
  Report Type: Spontaneous
  Country: US (occurrence: US)
  Receive Date: 20180416
  Receipt Date: 20180416
  Transmission Date: 20180711
  Serious: No
  Sender: FDA-Public Use
  Company Number: US-JNJFOC-20180403120

PATIENT
  Age: 75 Year
  Sex: Male

DRUGS (4)
  1. VITAMIN D [Concomitant]
     Active Substance: CHOLECALCIFEROL
     Route: 065
  2. ZYTIGA [Suspect]
     Active Substance: ABIRATERONE ACETATE
     Indication: PROSTATE CANCER
     Route: 048
     Dates: start: 20180108
  3. LUPRON [Concomitant]
     Active Substance: LEUPROLIDE ACETATE
     Route: 050
  4. PREDNISONE. [Concomitant]
     Active Substance: PREDNISONE
     Route: 065

REACTIONS (1)
  - Arthralgia [Unknown]

NARRATIVE: CASE EVENT DATE: 20180108
